FAERS Safety Report 4299988-1 (Version None)
Quarter: 2004Q1

REPORT INFORMATION
  Report Type: 
  Country: None (occurrence: None)
  Receive Date: 20040218
  Receipt Date: 20040203
  Transmission Date: 20041129
  Serious: Yes (Death)
  Sender: FDA-Public Use
  Company Number: K200400135

PATIENT
  Age: 46 Year
  Sex: Female

DRUGS (4)
  1. SEPTRA [Suspect]
     Indication: PNEUMOCYSTIS CARINII PNEUMONIA
     Dosage: 20/100 MG/KG/D, INTRAVENOUS
     Route: 042
  2. ZIDOVUDINE [Concomitant]
  3. GANCICLOVIR [Concomitant]
  4. METHYLPREDNISOLONE [Concomitant]

REACTIONS (2)
  - METABOLIC ACIDOSIS [None]
  - RESPIRATORY FAILURE [None]
